FAERS Safety Report 4553188-6 (Version None)
Quarter: 2005Q1

REPORT INFORMATION
  Report Type: 
  Country: None (occurrence: None)
  Receive Date: 20050112
  Receipt Date: 20050112
  Transmission Date: 20050727
  Serious: Yes (Life-Threatening, Hospitalization)
  Sender: FDA-Public Use
  Company Number: None

PATIENT
  Age: 47 Year
  Sex: Female
  Weight: 60.5 kg

DRUGS (8)
  1. TAMOXIFEN CITRATE [Suspect]
     Indication: BREAST CANCER
  2. PRILOSEC [Concomitant]
  3. MULTI-VITAMIN [Concomitant]
  4. CALCIUM GLUCONATE [Concomitant]
  5. IBUPROFEN [Concomitant]
  6. SENOKOT [Concomitant]
  7. VITAMIN E [Concomitant]
  8. SURFAK [Concomitant]

REACTIONS (1)
  - ENDOMETRIAL CANCER [None]
